FAERS Safety Report 18699873 (Version 1)
Quarter: 2021Q1

REPORT INFORMATION
  Report Type: Spontaneous
  Country: GB (occurrence: GB)
  Receive Date: 20210105
  Receipt Date: 20210105
  Transmission Date: 20210419
  Serious: No
  Sender: FDA-Public Use
  Company Number: GB-PFIZER INC-2020512073

PATIENT
  Age: 36 Year
  Sex: Female

DRUGS (1)
  1. SAYANA PRESS [Suspect]
     Active Substance: MEDROXYPROGESTERONE\MEDROXYPROGESTERONE ACETATE
     Dosage: UNK UNK, CYCLIC

REACTIONS (3)
  - Incorrect dose administered [Unknown]
  - Menorrhagia [Unknown]
  - Device issue [Unknown]
